FAERS Safety Report 5055960-5 (Version None)
Quarter: 2006Q3

REPORT INFORMATION
  Report Type: 
  Country: None (occurrence: None)
  Receive Date: 20060720
  Receipt Date: 20060717
  Transmission Date: 20061208
  Serious: Yes (Hospitalization, Other)
  Sender: FDA-Public Use
  Company Number: FR-AVENTIS-200612514FR

PATIENT
  Age: 26 Year
  Sex: Male
  Weight: 90 kg

DRUGS (1)
  1. BIRODOGYL [Suspect]
     Indication: PERIODONTITIS
     Route: 048
     Dates: start: 20060405, end: 20060417

REACTIONS (6)
  - ABDOMINAL PAIN UPPER [None]
  - ANOREXIA [None]
  - CYTOLYTIC HEPATITIS [None]
  - NAUSEA [None]
  - OEDEMA PERIPHERAL [None]
  - VERTIGO [None]
